FAERS Safety Report 18938077 (Version 2)
Quarter: 2021Q1

REPORT INFORMATION
  Report Type: Spontaneous
  Country: IT (occurrence: IT)
  Receive Date: 20210224
  Receipt Date: 20210326
  Transmission Date: 20210420
  Serious: Yes (Life-Threatening, Other)
  Sender: FDA-Public Use
  Company Number: IT-PFIZER INC-2021158952

PATIENT
  Sex: Female
  Weight: 70 kg

DRUGS (12)
  1. CISPLATIN. [Suspect]
     Active Substance: CISPLATIN
     Indication: NON-HODGKIN^S LYMPHOMA
     Dosage: UNK, R?DHAP? 3 CYCLES
     Route: 065
     Dates: start: 202007, end: 202008
  2. VINCRISTINE SULFATE. [Suspect]
     Active Substance: VINCRISTINE SULFATE
     Indication: NON-HODGKIN^S LYMPHOMA
     Dosage: UNK, 1 CYCLE
     Route: 065
     Dates: start: 202012
  3. OBINUTUZUMAB. [Suspect]
     Active Substance: OBINUTUZUMAB
     Indication: NON-HODGKIN^S LYMPHOMA
     Dosage: UNK, 6 CYCLES?FIRST LINE THERAPY
     Route: 042
     Dates: start: 201912, end: 202005
  4. PIXANTRONE [Suspect]
     Active Substance: PIXANTRONE
     Indication: NON-HODGKIN^S LYMPHOMA
     Dosage: UNK, 2 CYCLES
     Route: 065
     Dates: start: 202010, end: 202011
  5. PREDNISONE. [Suspect]
     Active Substance: PREDNISONE
     Indication: NON-HODGKIN^S LYMPHOMA
     Dosage: UNK
     Route: 065
     Dates: start: 202012
  6. ETOPOSIDE PHOSPHATE [Suspect]
     Active Substance: ETOPOSIDE PHOSPHATE
     Indication: NON-HODGKIN^S LYMPHOMA
     Dosage: UNK, 1 CYCLE
     Route: 065
     Dates: start: 202012
  7. CYCLOPHOSPHAMIDE. [Suspect]
     Active Substance: CYCLOPHOSPHAMIDE
     Indication: NON-HODGKIN^S LYMPHOMA
     Dosage: UNK, 1 CYCLE
     Route: 065
     Dates: start: 202012
  8. BENDAMUSTINE [Suspect]
     Active Substance: BENDAMUSTINE
     Indication: NON-HODGKIN^S LYMPHOMA
     Dosage: UNK, 6 CYCLES?FIRST LINE THERAPY
     Route: 065
     Dates: start: 201912, end: 202005
  9. DOXORUBICIN HCL [Suspect]
     Active Substance: DOXORUBICIN HYDROCHLORIDE
     Indication: NON-HODGKIN^S LYMPHOMA
     Dosage: UNK 1 CYCLE
     Route: 065
     Dates: start: 202012
  10. DEXAMETHASONE SODIUM PHOSPHATE. [Suspect]
     Active Substance: DEXAMETHASONE SODIUM PHOSPHATE
     Indication: NON-HODGKIN^S LYMPHOMA
     Dosage: UNK, R?DHAP? 3 CYCLES
     Route: 065
     Dates: start: 202007, end: 202008
  11. CYTARABINE. [Suspect]
     Active Substance: CYTARABINE
     Indication: NON-HODGKIN^S LYMPHOMA
     Dosage: UNK, R?DHAP? 3 CYCLES
     Route: 065
     Dates: start: 202007, end: 202008
  12. RITUXIMAB. [Suspect]
     Active Substance: RITUXIMAB
     Dosage: UNK, R?DHAP? 3 CYCLES
     Route: 065
     Dates: start: 202007, end: 202008

REACTIONS (6)
  - Thrombocytopenia [Recovered/Resolved]
  - Anaemia [Recovered/Resolved]
  - Neutropenia [Recovered/Resolved]
  - Device related thrombosis [Recovered/Resolved]
  - Off label use [Unknown]
  - Neoplasm progression [Not Recovered/Not Resolved]

NARRATIVE: CASE EVENT DATE: 202101
